FAERS Safety Report 16095585 (Version 1)
Quarter: 2019Q1

REPORT INFORMATION
  Report Type: Spontaneous
  Country: CO (occurrence: CO)
  Receive Date: 20190320
  Receipt Date: 20190320
  Transmission Date: 20190418
  Serious: Yes (Other)
  Sender: FDA-Public Use
  Company Number: CO-BAYER-2019-052531

PATIENT
  Age: 6 Year
  Sex: Male

DRUGS (1)
  1. KOVALTRY [Suspect]
     Active Substance: ANTIHEMOPHILIC FACTOR, HUMAN RECOMBINANT
     Indication: FACTOR VIII DEFICIENCY
     Dosage: 16.6 IU/KG, UNK
     Route: 042
     Dates: start: 201802

REACTIONS (1)
  - Anti factor VIII antibody increased [Unknown]

NARRATIVE: CASE EVENT DATE: 20190309
